FAERS Safety Report 6390163-3 (Version None)
Quarter: 2009Q4

REPORT INFORMATION
  Report Type: 
  Country: None (occurrence: None)
  Receive Date: 20091005
  Receipt Date: 20091005
  Transmission Date: 20100525
  Serious: No
  Sender: FDA-Public Use
  Company Number: None

PATIENT
  Age: 60 Year
  Sex: Male

DRUGS (3)
  1. DEMEROL [Suspect]
     Indication: NAUSEA
     Dosage: 50 MG ONCE IM, MG ONCE IM
     Route: 030
     Dates: start: 20090721, end: 20090721
  2. DEMEROL [Suspect]
     Indication: PAIN
     Dosage: 50 MG ONCE IM, MG ONCE IM
     Route: 030
     Dates: start: 20090721, end: 20090721
  3. PHENERGAN HCL [Suspect]

REACTIONS (1)
  - DRUG HYPERSENSITIVITY [None]
